FAERS Safety Report 6474792-4 (Version None)
Quarter: 2009Q4

REPORT INFORMATION
  Report Type: 
  Country: None (occurrence: None)
  Receive Date: 20091204
  Receipt Date: 20090610
  Transmission Date: 20100525
  Serious: Yes (Hospitalization)
  Sender: FDA-Public Use
  Company Number: US-ELI_LILLY_AND_COMPANY-US200902002500

PATIENT
  Sex: Male
  Weight: 101.13 kg

DRUGS (3)
  1. ZYPREXA [Suspect]
     Dosage: 5 MG, UNK
     Dates: start: 20040901, end: 20040901
  2. ZYPREXA [Suspect]
     Dosage: 10 MG, UNK
     Dates: start: 20040901, end: 20041001
  3. ZYPREXA [Suspect]
     Dosage: 15 MG, UNK
     Dates: start: 20040901, end: 20041001

REACTIONS (2)
  - HOSPITALISATION [None]
  - TYPE 2 DIABETES MELLITUS [None]
